FAERS Safety Report 9400395 (Version 1)
Quarter: 2013Q3

REPORT INFORMATION
  Report Type: Spontaneous
  Country: IT (occurrence: None)
  Receive Date: 20130711
  Receipt Date: 20130711
  Transmission Date: 20140515
  Serious: Yes (Congenital Anomaly)
  Sender: FDA-Public Use
  Company Number: 1790307

PATIENT
  Age: 25 Week
  Sex: Male
  Weight: 3.08 kg

DRUGS (1)
  1. EPIRUBICIN HYDROCHLORIDE [Suspect]
     Route: 064

REACTIONS (7)
  - Infection [None]
  - Maternal drugs affecting foetus [None]
  - Ventricular hypokinesia [None]
  - Caesarean section [None]
  - Klebsiella test positive [None]
  - Acinetobacter test positive [None]
  - Staphylococcus test positive [None]
